FAERS Safety Report 12571571 (Version 1)
Quarter: 2016Q3

REPORT INFORMATION
  Report Type: Other
  Country: GB (occurrence: GB)
  Receive Date: 20160719
  Receipt Date: 20160719
  Transmission Date: 20161109
  Serious: Yes (Life-Threatening, Hospitalization, Other)
  Sender: FDA-Public Use
  Company Number: GB-TAKEDA-2016TUS012477

PATIENT
  Age: 53 Year
  Sex: Male
  Weight: 92.8 kg

DRUGS (1)
  1. ENTYVIO [Suspect]
     Active Substance: VEDOLIZUMAB
     Indication: CROHN^S DISEASE
     Dosage: 300 MG, UNK
     Route: 042
     Dates: start: 20160421, end: 20160528

REACTIONS (3)
  - Meningitis viral [Recovered/Resolved]
  - Headache [Unknown]
  - Facial paralysis [Unknown]

NARRATIVE: CASE EVENT DATE: 20160528
